FAERS Safety Report 5201684-0 (Version None)
Quarter: 2006Q4

REPORT INFORMATION
  Report Type: 
  Country: None (occurrence: None)
  Receive Date: 20061010
  Receipt Date: 20050912
  Transmission Date: 20070319
  Serious: Yes (Other)
  Sender: FDA-Public Use
  Company Number: 2005-BP-09715BP

PATIENT
  Sex: Female

DRUGS (2)
  1. CATAPRES [Suspect]
     Indication: HYPERTENSION
     Dosage: 0.2 MG (5 MG, 1 PATCH Q WEEK), TO
     Dates: start: 20050529, end: 20050608
  2. LEVOXYL [Concomitant]

REACTIONS (1)
  - BLOOD PRESSURE INCREASED [None]
